FAERS Safety Report 15927759 (Version 1)
Quarter: 2019Q1

REPORT INFORMATION
  Report Type: Spontaneous
  Country: US (occurrence: US)
  Receive Date: 20190206
  Receipt Date: 20190206
  Transmission Date: 20190417
  Serious: Yes (Other)
  Sender: FDA-Public Use
  Company Number: US-JNJFOC-20190203900

PATIENT
  Age: 42 Year
  Sex: Male

DRUGS (1)
  1. INVOKANA [Suspect]
     Active Substance: CANAGLIFLOZIN
     Indication: TYPE 2 DIABETES MELLITUS
     Route: 048
     Dates: start: 20140626

REACTIONS (6)
  - Fall [Unknown]
  - Necrosis [Unknown]
  - Toe amputation [Unknown]
  - Diabetic ulcer [Unknown]
  - Osteomyelitis chronic [Unknown]
  - Wound [Unknown]

NARRATIVE: CASE EVENT DATE: 201509
